FAERS Safety Report 7037479-5 (Version None)
Quarter: 2010Q4

REPORT INFORMATION
  Report Type: 
  Country: None (occurrence: None)
  Receive Date: 20101011
  Receipt Date: 20101004
  Transmission Date: 20110411
  Serious: Yes (Other)
  Sender: FDA-Public Use
  Company Number: A0881300A

PATIENT
  Age: 39 Year
  Sex: Female

DRUGS (2)
  1. ADVAIR DISKUS 100/50 [Suspect]
     Indication: ASTHMA
     Dosage: 1PUFF TWICE PER DAY
     Route: 055
     Dates: start: 20050101, end: 20070101
  2. ALBUTEROL [Concomitant]

REACTIONS (7)
  - ALOPECIA [None]
  - BLINDNESS [None]
  - GASTROINTESTINAL DISORDER [None]
  - LIVER DISORDER [None]
  - SKIN ULCER [None]
  - SPEECH DISORDER [None]
  - URINARY INCONTINENCE [None]
